FAERS Safety Report 9099324 (Version 1)
Quarter: 2013Q1

REPORT INFORMATION
  Report Type: Spontaneous
  Country: US (occurrence: US)
  Receive Date: 20130213
  Receipt Date: 20130213
  Transmission Date: 20140127
  Serious: Yes (Death, Other)
  Sender: FDA-Public Use
  Company Number: US-ELI_LILLY_AND_COMPANY-US201302001719

PATIENT
  Age: 59 Year
  Sex: Male

DRUGS (7)
  1. DULOXETINE HYDROCHLORIDE [Suspect]
  2. MORPHINE [Concomitant]
  3. HYDROMORPHONE [Concomitant]
  4. ALPRAZOLAM [Concomitant]
  5. MIRTAZAPINE [Concomitant]
  6. PROPRANOLOL [Concomitant]
  7. METOPROLOL [Concomitant]

REACTIONS (2)
  - Cardio-respiratory arrest [Fatal]
  - Death [Fatal]
